FAERS Safety Report 13410462 (Version 4)
Quarter: 2023Q4

REPORT INFORMATION
  Report Type: Spontaneous
  Country: US (occurrence: US)
  Receive Date: 20170406
  Receipt Date: 20231011
  Transmission Date: 20240110
  Serious: No
  Sender: FDA-Public Use
  Company Number: US-JNJFOC-20170226567

PATIENT
  Age: 4 Year
  Sex: Male

DRUGS (4)
  1. RISPERDAL [Suspect]
     Active Substance: RISPERIDONE
     Indication: Separation anxiety disorder
     Dosage: VARYING DOSE 0.25 MG, 0.5 MG AND 1 MG WITH VARYING FREQUENCY OF TWICE DAILY AND THRICE DAILY.
     Route: 048
     Dates: start: 20020313, end: 20070913
  2. RISPERDAL [Suspect]
     Active Substance: RISPERIDONE
     Indication: Attention deficit hyperactivity disorder
  3. RISPERDAL [Suspect]
     Active Substance: RISPERIDONE
     Indication: Impulse-control disorder
  4. RISPERDAL [Suspect]
     Active Substance: RISPERIDONE
     Indication: Aggression

REACTIONS (7)
  - Emotional distress [Unknown]
  - Aggression [Unknown]
  - Feeling abnormal [Unknown]
  - Gynaecomastia [Unknown]
  - Irritability [Unknown]
  - Fatigue [Unknown]
  - Off label use [Unknown]

NARRATIVE: CASE EVENT DATE: 20020101
